FAERS Safety Report 11664034 (Version 1)
Quarter: 2015Q4

REPORT INFORMATION
  Report Type: Spontaneous
  Country: US (occurrence: None)
  Receive Date: 20151026
  Receipt Date: 20151026
  Transmission Date: 20160304
  Serious: Yes (Other)
  Sender: FDA-Public Use
  Company Number: None

PATIENT
  Age: 59 Year
  Sex: Female
  Weight: 77.11 kg

DRUGS (7)
  1. CALCIUM [Concomitant]
     Active Substance: CALCIUM
  2. FOLATE [Concomitant]
     Active Substance: FOLATE SODIUM
  3. CPAP [Concomitant]
     Active Substance: DEVICE
  4. OTEZLA [Suspect]
     Active Substance: APREMILAST
     Indication: PSORIATIC ARTHROPATHY
     Dosage: ONE PILL
     Route: 048
     Dates: start: 20111111, end: 20150901
  5. PRISTIQ EXTENDED RELEASE [Concomitant]
     Active Substance: DESVENLAFAXINE SUCCINATE
  6. VITAMIN D [Concomitant]
     Active Substance: CHOLECALCIFEROL
  7. HYDROCHLORTHIAZIDE [Concomitant]
     Active Substance: HYDROCHLOROTHIAZIDE

REACTIONS (8)
  - Fatigue [None]
  - Myalgia [None]
  - Malaise [None]
  - Diarrhoea [None]
  - Abdominal distension [None]
  - Gastrooesophageal reflux disease [None]
  - Pyrexia [None]
  - Muscle spasms [None]

NARRATIVE: CASE EVENT DATE: 20150806
